FAERS Safety Report 23524043 (Version 1)
Quarter: 2024Q1

REPORT INFORMATION
  Report Type: Spontaneous
  Country: JP (occurrence: JP)
  Receive Date: 20240214
  Receipt Date: 20240214
  Transmission Date: 20240410
  Serious: Yes (Other)
  Sender: FDA-Public Use
  Company Number: JP-HEXAL-SDZ2023JP036658AA

PATIENT
  Sex: Male

DRUGS (2)
  1. VALSARTAN [Suspect]
     Active Substance: VALSARTAN
     Indication: Product used for unknown indication
     Dosage: UNK
     Route: 048
  2. NIFEDIPINE [Suspect]
     Active Substance: NIFEDIPINE
     Indication: Product used for unknown indication
     Dosage: 80 MG, QD (40 MG, BID, IN MORNING AND EVENING)
     Route: 048

REACTIONS (4)
  - Blood pressure increased [Unknown]
  - Fall [Unknown]
  - Decreased appetite [Unknown]
  - Product dose omission in error [Unknown]
